FAERS Safety Report 4829316-1 (Version None)
Quarter: 2005Q4

REPORT INFORMATION
  Report Type: 
  Country: None (occurrence: None)
  Receive Date: 20051028
  Receipt Date: 20050919
  Transmission Date: 20060501
  Serious: No
  Sender: FDA-Public Use
  Company Number: US150983

PATIENT
  Sex: Female

DRUGS (1)
  1. KEPIVANCE [Suspect]
     Indication: MUCOSAL INFLAMMATION
     Dates: start: 20050901

REACTIONS (2)
  - PALATAL OEDEMA [None]
  - SWOLLEN TONGUE [None]
